FAERS Safety Report 9669520 (Version 1)
Quarter: 2013Q4

REPORT INFORMATION
  Report Type: Spontaneous
  Country: US (occurrence: US)
  Receive Date: 20131105
  Receipt Date: 20131105
  Transmission Date: 20140711
  Serious: No
  Sender: FDA-Public Use
  Company Number: US-PFIZER INC-2013315414

PATIENT
  Age: 84 Year
  Sex: Female
  Weight: 49.89 kg

DRUGS (3)
  1. LYRICA [Suspect]
     Indication: NEURALGIA
     Dosage: 100 MG (TWO CAPSULES OF 50MG IN THE MORNING AND TWO CAPSULES OF 50MG AT NIGHT), 2X/DAY
     Route: 048
     Dates: start: 201302
  2. LYRICA [Suspect]
     Dosage: 150 MG (THREE CAPSULES OF LYRICA 50MG), 1X/DAY
     Route: 048
  3. ATENOLOL [Concomitant]
     Indication: HYPERTENSION
     Dosage: UNK

REACTIONS (3)
  - Intentional drug misuse [Unknown]
  - Pain [Unknown]
  - Increased appetite [Unknown]
